FAERS Safety Report 14137984 (Version 1)
Quarter: 2017Q4

REPORT INFORMATION
  Report Type: Spontaneous
  Country: US (occurrence: US)
  Receive Date: 20171027
  Receipt Date: 20171027
  Transmission Date: 20180321
  Serious: Yes (Other)
  Sender: FDA-Public Use
  Company Number: US-009507513-1710USA009782

PATIENT
  Age: 43 Year
  Sex: Female
  Weight: 52.15 kg

DRUGS (1)
  1. NEXPLANON [Suspect]
     Active Substance: ETONOGESTREL
     Indication: CONTRACEPTION
     Dosage: 3 YEARS IMPLANT; IMPLANT INSIDE THE LEFT ARM
     Route: 059

REACTIONS (2)
  - Metrorrhagia [Not Recovered/Not Resolved]
  - Ovarian cyst ruptured [Unknown]

NARRATIVE: CASE EVENT DATE: 2017
